FAERS Safety Report 8966488 (Version 2)
Quarter: 2013Q1

REPORT INFORMATION
  Report Type: Spontaneous
  Country: ZA (occurrence: ZA)
  Receive Date: 20121217
  Receipt Date: 20130131
  Transmission Date: 20140127
  Serious: Yes (Other)
  Sender: FDA-Public Use
  Company Number: ZA-JNJFOC-20121205324

PATIENT
  Age: 27 None
  Sex: Female

DRUGS (8)
  1. REVELLEX [Suspect]
     Indication: RHEUMATOID ARTHRITIS
     Route: 042
     Dates: start: 20121126
  2. REVELLEX [Suspect]
     Indication: RHEUMATOID ARTHRITIS
     Route: 042
     Dates: start: 20120613
  3. REVELLEX [Suspect]
     Indication: ANKYLOSING SPONDYLITIS
     Route: 042
     Dates: start: 20121126
  4. REVELLEX [Suspect]
     Indication: ANKYLOSING SPONDYLITIS
     Route: 042
     Dates: start: 20120613
  5. TAVANIC [Suspect]
     Indication: BRONCHITIS
     Route: 065
  6. CLARITHROMYCIN [Suspect]
     Indication: BRONCHITIS
     Route: 065
  7. ARCOXIA [Concomitant]
     Indication: PAIN
     Route: 048
  8. OMEZ [Concomitant]
     Indication: HIATUS HERNIA
     Route: 048

REACTIONS (6)
  - Influenza [Recovered/Resolved]
  - Measles [Recovered/Resolved]
  - Bronchitis [Recovered/Resolved]
  - Oropharyngeal candidiasis [Recovered/Resolved]
  - Cough [Not Recovered/Not Resolved]
  - Diarrhoea [Recovered/Resolved]
